FAERS Safety Report 18761853 (Version 1)
Quarter: 2021Q1

REPORT INFORMATION
  Report Type: Spontaneous
  Country: US (occurrence: US)
  Receive Date: 20210116
  Receipt Date: 20210116
  Transmission Date: 20210419
  Serious: Yes (Hospitalization)
  Sender: FDA-Public Use
  Company Number: None

PATIENT
  Age: 45 Year
  Sex: Female

DRUGS (17)
  1. DULOXETINE. [Concomitant]
     Active Substance: DULOXETINE
  2. METFORMIN [Concomitant]
     Active Substance: METFORMIN HYDROCHLORIDE
  3. METRONIDAZOL [Concomitant]
     Active Substance: METRONIDAZOLE
  4. SIMVASTATIN. [Concomitant]
     Active Substance: SIMVASTATIN
  5. CELECOXIB. [Concomitant]
     Active Substance: CELECOXIB
  6. POTASSIUM [Concomitant]
     Active Substance: POTASSIUM
  7. HUMIRA [Suspect]
     Active Substance: ADALIMUMAB
     Indication: RHEUMATOID ARTHRITIS
     Route: 058
     Dates: start: 20200123
  8. GABAPENTIN. [Concomitant]
     Active Substance: GABAPENTIN
  9. LOSARTAN POT [Concomitant]
     Active Substance: LOSARTAN POTASSIUM
  10. SULFASALAZINE DELAYED?RELEASE [Concomitant]
     Active Substance: SULFASALAZINE
  11. NITROFURANTN [Concomitant]
     Active Substance: NITROFURANTOIN
  12. TEMAZEPAM. [Concomitant]
     Active Substance: TEMAZEPAM
  13. ZOLPIDEM [Concomitant]
     Active Substance: ZOLPIDEM TARTRATE
  14. CARVEDILOL. [Concomitant]
     Active Substance: CARVEDILOL
  15. CEPHALEXIN. [Concomitant]
     Active Substance: CEPHALEXIN
  16. ASPIRIN. [Concomitant]
     Active Substance: ASPIRIN
  17. FUROSEMIDE. [Concomitant]
     Active Substance: FUROSEMIDE

REACTIONS (7)
  - Fluid retention [None]
  - Therapy interrupted [None]
  - Condition aggravated [None]
  - White blood cell count increased [None]
  - Blood potassium decreased [None]
  - Urinary tract infection [None]
  - Infection [None]

NARRATIVE: CASE EVENT DATE: 20201228
